FAERS Safety Report 10418538 (Version 1)
Quarter: 2014Q2

REPORT INFORMATION
  Report Type: Spontaneous
  Country: US (occurrence: None)
  Receive Date: 20140609
  Receipt Date: 20140609
  Transmission Date: 20141212
  Serious: No
  Sender: FDA-Public Use
  Company Number: 2014TUS002270

PATIENT
  Age: 51 Year
  Sex: Female

DRUGS (4)
  1. BRINTELLIX (VORTIOXETINE) TABLET, 20MG [Suspect]
     Indication: ANXIETY
     Dosage: 2 TABLETS
     Route: 048
     Dates: start: 201402, end: 2014
  2. BRINTELLIX (VORTIOXETINE) TABLET, 20MG [Suspect]
     Indication: OBSESSIVE-COMPULSIVE DISORDER
     Dosage: 2 TABLETS
     Route: 048
     Dates: start: 201402, end: 2014
  3. BRINTELLIX (VORTIOXETINE) TABLET, 20MG [Suspect]
     Indication: MAJOR DEPRESSION
     Dosage: 2 TABLETS
     Route: 048
     Dates: start: 201402, end: 2014
  4. BRINTELLIX (VORTIOXETINE) TABLET, 20MG [Suspect]
     Dosage: 2 TABLETS
     Route: 048
     Dates: start: 201402, end: 2014

REACTIONS (2)
  - Anxiety [None]
  - Accidental overdose [None]
